FAERS Safety Report 8598133-1 (Version None)
Quarter: 2012Q3

REPORT INFORMATION
  Report Type: 
  Country: None (occurrence: None)
  Receive Date: 20120816
  Receipt Date: 20120809
  Transmission Date: 20120928
  Serious: Yes (Hospitalization)
  Sender: FDA-Public Use
  Company Number: FR-PFIZER INC-2012194034

PATIENT
  Age: 88 Year
  Sex: Female

DRUGS (2)
  1. LANSOPRAZOLE [Concomitant]
     Indication: ULCER
     Dosage: UNK
     Route: 048
     Dates: start: 20120415, end: 20120502
  2. AROMASIN [Suspect]
     Indication: BREAST CANCER
     Dosage: UNK
     Route: 048
     Dates: start: 20120330, end: 20120606

REACTIONS (2)
  - VASCULAR PURPURA [None]
  - SKIN NECROSIS [None]
